FAERS Safety Report 7980890-6 (Version None)
Quarter: 2011Q4

REPORT INFORMATION
  Report Type: 
  Country: None (occurrence: None)
  Receive Date: 20111214
  Receipt Date: 20111201
  Transmission Date: 20120403
  Serious: Yes (Hospitalization)
  Sender: FDA-Public Use
  Company Number: US-MYLANLABS-2011S1025151

PATIENT
  Age: 53 Year
  Sex: Male

DRUGS (2)
  1. CYCLOBENZAPRINE [Suspect]
     Indication: BACK PAIN
     Route: 065
  2. PROCET                             /01554201/ [Concomitant]
     Indication: BACK PAIN
     Route: 065

REACTIONS (1)
  - NEUROLEPTIC MALIGNANT SYNDROME [None]
